FAERS Safety Report 18756182 (Version 1)
Quarter: 2021Q1

REPORT INFORMATION
  Report Type: Spontaneous
  Country: US (occurrence: US)
  Receive Date: 20210117
  Receipt Date: 20210117
  Transmission Date: 20210419
  Serious: Yes (Disabling)
  Sender: FDA-Public Use
  Company Number: None

PATIENT
  Sex: Male

DRUGS (1)
  1. MIRALAX [Suspect]
     Active Substance: POLYETHYLENE GLYCOL 3350
     Indication: CONSTIPATION

REACTIONS (6)
  - Lactose intolerance [None]
  - Obsessive-compulsive disorder [None]
  - Speech disorder developmental [None]
  - Anger [None]
  - Aggression [None]
  - Psychomotor hyperactivity [None]
